FAERS Safety Report 5166684-8 (Version None)
Quarter: 2006Q4

REPORT INFORMATION
  Report Type: 
  Country: None (occurrence: None)
  Receive Date: 20061207
  Receipt Date: 20061115
  Transmission Date: 20070319
  Serious: Yes (Hospitalization)
  Sender: FDA-Public Use
  Company Number: JP-NOVOPROD-258755

PATIENT
  Age: 51 Year
  Sex: Male
  Weight: 56 kg

DRUGS (6)
  1. NOVORAPID 30 MIX CHU FLEXPEN [Suspect]
     Indication: INSULIN-REQUIRING TYPE II DIABETES MELLITUS
     Dosage: 26-42 IU, QD
     Route: 058
     Dates: start: 20060911, end: 20061025
  2. NOVOLIN R [Suspect]
     Indication: INSULIN-REQUIRING TYPE II DIABETES MELLITUS
     Dosage: 42 IU, QD
     Route: 058
     Dates: start: 20061108
  3. HUMALOG MIX                        /01293501/ [Concomitant]
     Indication: INSULIN-REQUIRING TYPE II DIABETES MELLITUS
     Dosage: 42 IU, QD
     Route: 058
     Dates: start: 20061025, end: 20061030
  4. MAGMITT [Concomitant]
     Dosage: 2 TAB, QD
     Route: 048
     Dates: start: 20060916
  5. HUMULIN 70/30 [Concomitant]
     Indication: INSULIN-REQUIRING TYPE II DIABETES MELLITUS
     Route: 058
     Dates: start: 20061026, end: 20061026
  6. HUMULIN 70/30 [Concomitant]
     Route: 058
     Dates: start: 20061109

REACTIONS (4)
  - ALANINE AMINOTRANSFERASE INCREASED [None]
  - ASPARTATE AMINOTRANSFERASE INCREASED [None]
  - BLOOD GLUCOSE INCREASED [None]
  - GAMMA-GLUTAMYLTRANSFERASE INCREASED [None]
